FAERS Safety Report 10255957 (Version 4)
Quarter: 2014Q3

REPORT INFORMATION
  Report Type: Spontaneous
  Country: US (occurrence: US)
  Receive Date: 20140624
  Receipt Date: 20140710
  Transmission Date: 20150326
  Serious: Yes (Hospitalization)
  Sender: FDA-Public Use
  Company Number: US-GLAXOSMITHKLINE-A1078281A

PATIENT
  Age: 62 Year
  Sex: Female

DRUGS (1)
  1. AVANDAMET [Suspect]
     Active Substance: METFORMIN HYDROCHLORIDE\ROSIGLITAZONE MALEATE
     Indication: EYE DISORDER
     Route: 065
     Dates: start: 20070305

REACTIONS (8)
  - Pneumonia [Unknown]
  - Eye haemorrhage [Unknown]
  - Dyspnoea [Unknown]
  - Cataract [Unknown]
  - Blood glucose increased [Unknown]
  - Hypertension [Not Recovered/Not Resolved]
  - Blood glucose fluctuation [Not Recovered/Not Resolved]
  - Cataract operation [Unknown]
